FAERS Safety Report 24273969 (Version 1)
Quarter: 2024Q3

REPORT INFORMATION
  Report Type: Spontaneous
  Country: CN (occurrence: CN)
  Receive Date: 20240902
  Receipt Date: 20240902
  Transmission Date: 20241017
  Serious: Yes (Disabling)
  Sender: PFIZER
  Company Number: CN-PFIZER INC-PV202400112539

PATIENT
  Age: 24 Year
  Sex: Female
  Weight: 58 kg

DRUGS (3)
  1. METHOTREXATE SODIUM [Suspect]
     Active Substance: METHOTREXATE SODIUM
     Indication: Ectopic pregnancy termination
     Dosage: 75 MG, 1X/DAY
     Route: 030
     Dates: start: 20240816, end: 20240816
  2. CALCIUM CHLORIDE\POTASSIUM CHLORIDE\SODIUM CHLORIDE\SODIUM LACTATE [Concomitant]
     Active Substance: CALCIUM CHLORIDE\POTASSIUM CHLORIDE\SODIUM CHLORIDE\SODIUM LACTATE
     Indication: Therapeutic procedure
     Dosage: 500 ML, 1X/DAY
     Route: 041
     Dates: start: 20240816, end: 20240816
  3. DEXTROSE\SODIUM CHLORIDE [Concomitant]
     Active Substance: DEXTROSE\SODIUM CHLORIDE
     Indication: Therapeutic procedure
     Dosage: 500 ML, 1X/DAY
     Route: 041
     Dates: start: 20240816, end: 20240816

REACTIONS (11)
  - Mouth ulceration [Recovering/Resolving]
  - Hepatic function abnormal [Recovering/Resolving]
  - Noninfective gingivitis [Recovering/Resolving]
  - Pruritus [Recovered/Resolved]
  - Rash erythematous [Recovering/Resolving]
  - Gingival swelling [Recovering/Resolving]
  - Pharyngeal swelling [Recovering/Resolving]
  - Gingival pain [Recovering/Resolving]
  - Oropharyngeal pain [Recovering/Resolving]
  - Off label use [Unknown]
  - Off label use [Unknown]

NARRATIVE: CASE EVENT DATE: 20240816
